FAERS Safety Report 5899596-2 (Version None)
Quarter: 2008Q3

REPORT INFORMATION
  Report Type: 
  Country: None (occurrence: None)
  Receive Date: 20080926
  Receipt Date: 20080923
  Transmission Date: 20090109
  Serious: Yes (Life-Threatening)
  Sender: FDA-Public Use
  Company Number: PHHY2008GB21445

PATIENT
  Age: 62 Year
  Sex: Female

DRUGS (2)
  1. DICLOFENAC [Suspect]
     Indication: SCIATICA
     Dosage: 75 MG, UNK
     Route: 048
     Dates: start: 20080723, end: 20080723
  2. ALBUTEROL SPIROS [Concomitant]
     Dosage: 2 DF, UNK

REACTIONS (2)
  - ATRIAL FIBRILLATION [None]
  - BRONCHOSPASM [None]
